FAERS Safety Report 19368799 (Version 1)
Quarter: 2021Q2

REPORT INFORMATION
  Report Type: Spontaneous
  Country: US (occurrence: US)
  Receive Date: 20210602
  Receipt Date: 20210602
  Transmission Date: 20210717
  Serious: No
  Sender: FDA-Public Use
  Company Number: US-ROCHE-2703717

PATIENT

DRUGS (3)
  1. LEMTRADA [Concomitant]
     Active Substance: ALEMTUZUMAB
  2. OCREVUS [Suspect]
     Active Substance: OCRELIZUMAB
     Indication: RELAPSING-REMITTING MULTIPLE SCLEROSIS
     Route: 065
  3. LEMTRADA [Concomitant]
     Active Substance: ALEMTUZUMAB

REACTIONS (1)
  - Alopecia [Unknown]
